FAERS Safety Report 23947556 (Version 1)
Quarter: 2024Q2

REPORT INFORMATION
  Report Type: Spontaneous
  Country: US (occurrence: US)
  Receive Date: 20240606
  Receipt Date: 20240606
  Transmission Date: 20240717
  Serious: No
  Sender: FDA-Public Use
  Company Number: US-MYLANLABS-2024M1046538

PATIENT
  Sex: Male

DRUGS (2)
  1. XANAX XR [Suspect]
     Active Substance: ALPRAZOLAM
     Indication: Product used for unknown indication
     Dosage: UNK
     Route: 065
  2. AUVELITY [Suspect]
     Active Substance: BUPROPION HYDROCHLORIDE\DEXTROMETHORPHAN HYDROBROMIDE
     Indication: Product used for unknown indication
     Dosage: UNK
     Route: 065

REACTIONS (11)
  - Alcohol abuse [Unknown]
  - Feeding disorder [Unknown]
  - Obsessive-compulsive disorder [Unknown]
  - Palpitations [Unknown]
  - Panic attack [Unknown]
  - Agitation [Unknown]
  - Irritability [Unknown]
  - Depression [Unknown]
  - Restlessness [Unknown]
  - Hyperhidrosis [Unknown]
  - Vomiting [Unknown]
